FAERS Safety Report 19463215 (Version 1)
Quarter: 2021Q2

REPORT INFORMATION
  Report Type: Report from Study
  Country: TW (occurrence: TW)
  Receive Date: 20210625
  Receipt Date: 20210625
  Transmission Date: 20210717
  Serious: Yes (Death)
  Sender: FDA-Public Use
  Company Number: TW-ASTRAZENECA-2021A557110

PATIENT
  Age: 58 Year
  Sex: Male

DRUGS (1)
  1. IMFINZI [Suspect]
     Active Substance: DURVALUMAB
     Indication: SMALL CELL LUNG CANCER
     Route: 042
     Dates: start: 20200726, end: 20210324

REACTIONS (1)
  - Death [Fatal]

NARRATIVE: CASE EVENT DATE: 20210608
